FAERS Safety Report 9686616 (Version 4)
Quarter: 2013Q4

REPORT INFORMATION
  Report Type: Spontaneous
  Country: ES (occurrence: ES)
  Receive Date: 20131113
  Receipt Date: 20131124
  Transmission Date: 20140711
  Serious: Yes (Death, Hospitalization)
  Sender: FDA-Public Use
  Company Number: ES-AMGEN-ESPSP2013079332

PATIENT
  Age: 77 Year
  Sex: Female
  Weight: 43 kg

DRUGS (8)
  1. XGEVA [Suspect]
     Indication: LUNG NEOPLASM MALIGNANT
     Dosage: 120 MG, EVERY 28 DAYS
     Route: 065
     Dates: start: 20131023
  2. XGEVA [Suspect]
     Indication: METASTASES TO BONE
  3. CALCIUM [Concomitant]
     Route: 048
  4. VITAMIN D                          /00107901/ [Concomitant]
  5. CALCIUM SANDOZ D [Concomitant]
     Dosage: 500/400
     Route: 048
     Dates: start: 20131023, end: 20131102
  6. RANITIDINE [Concomitant]
     Indication: PROPHYLAXIS
     Dosage: 300 MG, UNK
     Route: 048
     Dates: start: 20131023
  7. PARACETAMOL [Concomitant]
     Indication: PAIN
     Dosage: 1 G, UNK
     Route: 048
     Dates: start: 20131023
  8. IBUPROFEN [Concomitant]
     Indication: PAIN
     Dosage: 600 MG, UNK
     Route: 048
     Dates: start: 20131023

REACTIONS (8)
  - General physical health deterioration [Unknown]
  - Tonic convulsion [Unknown]
  - Restlessness [Unknown]
  - Altered state of consciousness [Unknown]
  - Muscle spasms [Unknown]
  - Hypotension [Unknown]
  - Renal failure [Unknown]
  - Hypocalcaemia [Fatal]
